FAERS Safety Report 9361435 (Version 1)
Quarter: 2013Q2

REPORT INFORMATION
  Report Type: Spontaneous
  Country: TR (occurrence: TR)
  Receive Date: 20130621
  Receipt Date: 20130621
  Transmission Date: 20140414
  Serious: Yes (Other)
  Sender: FDA-Public Use
  Company Number: TR-PFIZER INC-2013180646

PATIENT
  Age: 55 Year
  Sex: Male

DRUGS (2)
  1. LATANOPROST [Suspect]
     Indication: GLAUCOMA
     Dosage: 0.005%, UNK
     Route: 061
  2. BRIMONIDINE TARTRATE/TIMOLOL MALEATE [Concomitant]
     Indication: GLAUCOMA
     Dosage: 0.2%/0.5%

REACTIONS (1)
  - Chorioretinopathy [Recovering/Resolving]
